FAERS Safety Report 8042226-4 (Version None)
Quarter: 2012Q1

REPORT INFORMATION
  Report Type: 
  Country: None (occurrence: None)
  Receive Date: 20120112
  Receipt Date: 20120106
  Transmission Date: 20120608
  Serious: No
  Sender: FDA-Public Use
  Company Number: US-B.I. PHARMACEUTICALS,INC./RIDGEFIELD-2012-BP-00343BP

PATIENT
  Sex: Female

DRUGS (6)
  1. XANAX [Concomitant]
     Indication: INSOMNIA
     Route: 048
  2. HORMONES [Concomitant]
     Indication: MENOPAUSE
     Route: 048
  3. VITAMIN C [Concomitant]
     Indication: SUPPLEMENTATION THERAPY
     Route: 048
  4. CALCIUM [Concomitant]
     Indication: SUPPLEMENTATION THERAPY
     Route: 048
  5. MULTI-VITAMIN [Concomitant]
     Indication: SUPPLEMENTATION THERAPY
     Route: 048
  6. SPIRIVA [Suspect]
     Indication: EMPHYSEMA
     Dosage: 18 MCG
     Route: 055
     Dates: start: 20111222, end: 20120106

REACTIONS (7)
  - HEADACHE [None]
  - HYPOAESTHESIA [None]
  - GAIT DISTURBANCE [None]
  - CHEST PAIN [None]
  - CONSTIPATION [None]
  - MUSCULAR WEAKNESS [None]
  - PAIN [None]
